FAERS Safety Report 18307810 (Version 1)
Quarter: 2020Q3

REPORT INFORMATION
  Report Type: Spontaneous
  Country: CA (occurrence: CA)
  Receive Date: 20200924
  Receipt Date: 20200924
  Transmission Date: 20201103
  Serious: Yes (Life-Threatening, Hospitalization, Other)
  Sender: FDA-Public Use
  Company Number: CA-PFIZER INC-2020368459

PATIENT
  Age: 69 Year
  Sex: Male
  Weight: 77 kg

DRUGS (12)
  1. CARVEDILOL. [Concomitant]
     Active Substance: CARVEDILOL
  2. ELIQUIS [Concomitant]
     Active Substance: APIXABAN
  3. PANTOPRAZOLE [Concomitant]
     Active Substance: PANTOPRAZOLE
  4. ZOPICLONE [Concomitant]
     Active Substance: ZOPICLONE
  5. METHOTREXATE SODIUM. [Suspect]
     Active Substance: METHOTREXATE SODIUM
     Indication: RHEUMATOID ARTHRITIS
     Dosage: 20 MG, WEEKLY
     Route: 058
  6. ZENHALE [Concomitant]
     Active Substance: FORMOTEROL FUMARATE\MOMETASONE FUROATE
  7. ATIVAN [Concomitant]
     Active Substance: LORAZEPAM
  8. CITALOPRAM [Concomitant]
     Active Substance: CITALOPRAM HYDROBROMIDE
  9. BUPROPION. [Concomitant]
     Active Substance: BUPROPION
  10. DIPROSALIC [Concomitant]
     Active Substance: BETAMETHASONE DIPROPIONATE
  11. SPIRONOLACTONE. [Concomitant]
     Active Substance: SPIRONOLACTONE
  12. HUMIRA [Concomitant]
     Active Substance: ADALIMUMAB

REACTIONS (3)
  - Normocytic anaemia [Recovered/Resolved with Sequelae]
  - Off label use [Unknown]
  - Product use issue [Unknown]
